FAERS Safety Report 16372170 (Version 1)
Quarter: 2019Q2

REPORT INFORMATION
  Report Type: Spontaneous
  Country: US (occurrence: US)
  Receive Date: 20190530
  Receipt Date: 20190530
  Transmission Date: 20190711
  Serious: No
  Sender: FDA-Public Use
  Company Number: US-009507513-1905USA013197

PATIENT
  Sex: Male

DRUGS (1)
  1. ASMANEX [Suspect]
     Active Substance: MOMETASONE FUROATE
     Indication: ASTHMA
     Dosage: 120 DOSE, 1-2 PUFFS DAILY AS NEEDED
     Route: 055

REACTIONS (6)
  - Product dose omission [Unknown]
  - Product quality issue [Unknown]
  - Asthenia [Unknown]
  - Product use issue [Unknown]
  - Nasopharyngitis [Unknown]
  - Poor quality device used [Unknown]
